FAERS Safety Report 21457934 (Version 1)
Quarter: 2022Q4

REPORT INFORMATION
  Report Type: Report from Study
  Country: CA (occurrence: CA)
  Receive Date: 20221014
  Receipt Date: 20221014
  Transmission Date: 20230112
  Serious: Yes (Other)
  Sender: FDA-Public Use
  Company Number: CA-MYLANLABS-2022M1096581

PATIENT
  Sex: Male

DRUGS (1)
  1. HULIO [Suspect]
     Active Substance: ADALIMUMAB-FKJP
     Indication: Ankylosing spondylitis
     Dosage: 40 MILLIGRAM, BIWEEKLY (EVERY 2 WEEKS)
     Route: 058
     Dates: start: 20220210

REACTIONS (7)
  - Pneumonia [Unknown]
  - Bronchitis [Not Recovered/Not Resolved]
  - Secretion discharge [Unknown]
  - Body temperature increased [Unknown]
  - Asthenia [Unknown]
  - Dyspnoea [Unknown]
  - Inappropriate schedule of product administration [Unknown]
